FAERS Safety Report 8359640-X (Version None)
Quarter: 2012Q2

REPORT INFORMATION
  Report Type: 
  Country: None (occurrence: None)
  Receive Date: 20120515
  Receipt Date: 20120504
  Transmission Date: 20120825
  Serious: Yes (Hospitalization)
  Sender: FDA-Public Use
  Company Number: US-SANOFI-AVENTIS-2012SA015615

PATIENT
  Age: 75 Year
  Sex: Female

DRUGS (8)
  1. CALCIUM [Concomitant]
  2. SYNTHROID [Concomitant]
  3. ESTRADIOL [Concomitant]
  4. COUMADIN [Concomitant]
  5. XANAX [Concomitant]
  6. MOBIC [Concomitant]
  7. MULTAQ [Suspect]
     Indication: ATRIAL FIBRILLATION
     Route: 065
     Dates: start: 20101022, end: 20101201
  8. MULTI-VITAMINS [Concomitant]

REACTIONS (9)
  - EOSINOPHILIA [None]
  - DECREASED APPETITE [None]
  - FATIGUE [None]
  - DRUG-INDUCED LIVER INJURY [None]
  - HYPERBILIRUBINAEMIA [None]
  - ANTINUCLEAR ANTIBODY POSITIVE [None]
  - TRANSAMINASES INCREASED [None]
  - INTERNATIONAL NORMALISED RATIO INCREASED [None]
  - ABDOMINAL PAIN UPPER [None]
